FAERS Safety Report 13059781 (Version 2)
Quarter: 2017Q1

REPORT INFORMATION
  Report Type: Spontaneous
  Country: PE (occurrence: PE)
  Receive Date: 20161223
  Receipt Date: 20170111
  Transmission Date: 20170428
  Serious: Yes (Other)
  Sender: FDA-Public Use
  Company Number: PE-NOVOPROD-523855

PATIENT
  Age: 48 Year
  Sex: Male
  Weight: 60 kg

DRUGS (3)
  1. LEVEMIR [Suspect]
     Active Substance: INSULIN DETEMIR
     Indication: DIABETES MELLITUS
     Dosage: 10 IU, QD
     Route: 058
     Dates: start: 201604
  2. METFORMINA-GLIBENCLAMIDA [Concomitant]
     Indication: DIABETES MELLITUS
     Dosage: 850 MG, BID(METFORMIN 850MG+GLIBENCLAMIDA 5MG)
     Route: 048
  3. LEVEMIR [Suspect]
     Active Substance: INSULIN DETEMIR
     Dosage: 10 IU, QD
     Route: 058

REACTIONS (1)
  - Peritonectomy [Recovered/Resolved]

NARRATIVE: CASE EVENT DATE: 20161003
